FAERS Safety Report 25473254 (Version 1)
Quarter: 2025Q2

REPORT INFORMATION
  Report Type: Spontaneous
  Country: US (occurrence: None)
  Receive Date: 20250623
  Receipt Date: 20250623
  Transmission Date: 20250717
  Serious: Yes (Life-Threatening, Hospitalization)
  Sender: FDA-CTU
  Company Number: None

PATIENT
  Age: 62 Year
  Sex: Female
  Weight: 77.3 kg

DRUGS (1)
  1. TECVAYLI [Suspect]
     Active Substance: TECLISTAMAB-CQYV
     Indication: Plasma cell myeloma
     Dosage: OTHER FREQUENCY : WEEKLY;?
     Route: 058
     Dates: start: 20240402, end: 20250501

REACTIONS (7)
  - Progressive multifocal leukoencephalopathy [None]
  - Magnetic resonance imaging head abnormal [None]
  - Central nervous system lesion [None]
  - Demyelination [None]
  - JC virus CSF test positive [None]
  - Blood culture positive [None]
  - JC virus infection [None]

NARRATIVE: CASE EVENT DATE: 20250508
